FAERS Safety Report 16794651 (Version 1)
Quarter: 2019Q3

REPORT INFORMATION
  Report Type: Report from Study
  Country: CO (occurrence: CO)
  Receive Date: 20190911
  Receipt Date: 20190911
  Transmission Date: 20191005
  Serious: Yes (Life-Threatening)
  Sender: FDA-Public Use
  Company Number: CO-BRISTOL-MYERS SQUIBB COMPANY-BMS-2019-058094

PATIENT
  Age: 51 Year
  Sex: Female

DRUGS (1)
  1. NIVOLUMAB [Suspect]
     Active Substance: NIVOLUMAB
     Indication: MALIGNANT MELANOMA
     Dosage: UNK, Q2WK
     Route: 042
     Dates: start: 20190329, end: 20190531

REACTIONS (3)
  - Cortisol abnormal [Recovered/Resolved]
  - Cough [Recovering/Resolving]
  - Blood thyroid stimulating hormone [Recovered/Resolved]

NARRATIVE: CASE EVENT DATE: 20190531
